FAERS Safety Report 4591288-5 (Version None)
Quarter: 2005Q1

REPORT INFORMATION
  Report Type: 
  Country: None (occurrence: None)
  Receive Date: 20050225
  Receipt Date: 20050128
  Transmission Date: 20050727
  Serious: Yes (Hospitalization)
  Sender: FDA-Public Use
  Company Number: JP-ROCHE-393836

PATIENT
  Age: 77 Year
  Sex: Male
  Weight: 56.2 kg

DRUGS (9)
  1. PANALDINE [Suspect]
     Route: 048
     Dates: start: 20041015, end: 20050114
  2. DIOVAN [Concomitant]
     Indication: HYPERTENSION
     Route: 048
     Dates: start: 20020415, end: 20050103
  3. ANPLAG [Concomitant]
     Indication: ARTERIOSCLEROSIS
     Route: 048
     Dates: start: 20041002, end: 20050117
  4. ADALAT [Concomitant]
     Indication: HYPERTENSION
     Dosage: DOSE WAS INCREASED TO 40MG ON 13 OCTOBER 2004.
     Route: 048
     Dates: start: 20041004, end: 20050117
  5. ASPIRIN [Concomitant]
     Route: 048
     Dates: start: 20020415
  6. CYANOCOBALAMIN [Concomitant]
     Route: 048
     Dates: start: 20041007, end: 20041115
  7. THYRADIN [Concomitant]
     Indication: HYPOTHYROIDISM
     Route: 048
     Dates: start: 20041023, end: 20041103
  8. TOCOPHEROL CONCENTRATE CAP [Concomitant]
     Dosage: DRUG NAME REPORTED AS NE- KOTANI.
  9. VALTREX [Concomitant]

REACTIONS (7)
  - DISEASE PROGRESSION [None]
  - EOSINOPHILIA [None]
  - PNEUMONIA [None]
  - RASH [None]
  - RENAL IMPAIRMENT [None]
  - STAPHYLOCOCCAL SEPSIS [None]
  - THERAPY NON-RESPONDER [None]
